FAERS Safety Report 4630468-7 (Version None)
Quarter: 2005Q2

REPORT INFORMATION
  Report Type: 
  Country: None (occurrence: None)
  Receive Date: 20050405
  Receipt Date: 20050405
  Transmission Date: 20051028
  Serious: Yes (Death)
  Sender: FDA-Public Use
  Company Number: None

PATIENT
  Age: 44 Year
  Sex: Male

DRUGS (12)
  1. EMTIVA (EMTRICITABINE) [Suspect]
     Indication: URTICARIA
     Dosage: ONCE QD (200 MG)
     Dates: start: 20041001
  2. BACTRIM [Suspect]
     Indication: INFECTION PROPHYLAXIS
     Dosage: TWICE QD
     Dates: start: 20040801
  3. TENOFOVIR [Concomitant]
  4. NEVIRAPINE [Concomitant]
  5. EMTIVA [Concomitant]
  6. BACTRIM [Concomitant]
  7. FLUCONAZOLE [Concomitant]
  8. DIPHENHYDRAMINE HCL [Concomitant]
  9. M.V.I. [Concomitant]
  10. THIAMINE [Concomitant]
  11. FOLATE [Concomitant]
  12. AZITHROMYCIN [Concomitant]

REACTIONS (1)
  - TOXIC EPIDERMAL NECROLYSIS [None]
